FAERS Safety Report 6223231-7 (Version None)
Quarter: 2009Q2

REPORT INFORMATION
  Report Type: 
  Country: None (occurrence: None)
  Receive Date: 20090609
  Receipt Date: 20090525
  Transmission Date: 20091009
  Serious: Yes (Other)
  Sender: FDA-Public Use
  Company Number: 2009AL003695

PATIENT
  Sex: Female

DRUGS (1)
  1. DICLOFENAC SODIUM [Suspect]
     Dosage: 50 MG; BID; PO
     Route: 048

REACTIONS (2)
  - EYE HAEMORRHAGE [None]
  - PRODUCT SUBSTITUTION ISSUE [None]
